FAERS Safety Report 20263719 (Version 1)
Quarter: 2021Q4

REPORT INFORMATION
  Report Type: Spontaneous
  Country: AU (occurrence: AU)
  Receive Date: 20211231
  Receipt Date: 20211231
  Transmission Date: 20220303
  Serious: Yes (Other)
  Sender: FDA-Public Use
  Company Number: AU-Clinigen Group PLC/ Clinigen Healthcare Ltd-AU-CLGN-21-00680

PATIENT
  Age: 71 Year
  Sex: Male

DRUGS (4)
  1. AMIFOSTINE [Suspect]
     Active Substance: AMIFOSTINE
     Indication: Immune thrombocytopenia
     Route: 042
  2. RITUXIMAB [Concomitant]
     Active Substance: RITUXIMAB
     Indication: Immune thrombocytopenia
  3. PREDNISONE [Concomitant]
     Active Substance: PREDNISONE
     Indication: Immune thrombocytopenia
  4. HUMAN IMMUNOGLOBULIN G [Concomitant]
     Active Substance: HUMAN IMMUNOGLOBULIN G
     Indication: Immune thrombocytopenia
     Route: 042

REACTIONS (3)
  - Pulmonary oedema [Unknown]
  - Atrial fibrillation [Unknown]
  - Drug effective for unapproved indication [Unknown]
